FAERS Safety Report 7727738-2 (Version None)
Quarter: 2011Q3

REPORT INFORMATION
  Report Type: 
  Country: None (occurrence: None)
  Receive Date: 20110902
  Receipt Date: 20110812
  Transmission Date: 20111222
  Serious: Yes (Other)
  Sender: FDA-Public Use
  Company Number: US-MERCK-1108FRA00073

PATIENT
  Age: 39 Year
  Sex: Female

DRUGS (13)
  1. CYCLOSPORINE [Suspect]
     Indication: ACUTE MYELOID LEUKAEMIA
     Route: 065
  2. CYTARABINE [Suspect]
     Route: 065
     Dates: start: 20080601
  3. AMSACRINE [Suspect]
     Indication: ACUTE MYELOID LEUKAEMIA
     Route: 065
     Dates: start: 20080515
  4. CANCIDAS [Suspect]
     Indication: ACUTE MYELOID LEUKAEMIA
     Route: 042
  5. DAUNORUBICIN HCL [Suspect]
     Route: 065
     Dates: start: 20080601
  6. BUSULFAN [Suspect]
     Indication: ACUTE MYELOID LEUKAEMIA
     Route: 042
     Dates: start: 20080705, end: 20080708
  7. METHOTREXATE [Suspect]
     Indication: ACUTE MYELOID LEUKAEMIA
     Route: 065
  8. DAUNORUBICIN HCL [Suspect]
     Route: 065
     Dates: start: 20080407
  9. DAUNORUBICIN HCL [Suspect]
     Indication: ACUTE MYELOID LEUKAEMIA
     Route: 065
     Dates: start: 20080322
  10. CYCLOPHOSPHAMIDE [Suspect]
     Indication: ACUTE MYELOID LEUKAEMIA
     Route: 042
     Dates: start: 20080710, end: 20080711
  11. CYTARABINE [Suspect]
     Indication: ACUTE MYELOID LEUKAEMIA
     Route: 065
     Dates: start: 20080322
  12. CYTARABINE [Suspect]
     Route: 065
     Dates: start: 20080407
  13. CYTARABINE [Suspect]
     Route: 065
     Dates: start: 20080515

REACTIONS (1)
  - CYTOLYTIC HEPATITIS [None]
